FAERS Safety Report 6611801-3 (Version None)
Quarter: 2010Q1

REPORT INFORMATION
  Report Type: 
  Country: None (occurrence: None)
  Receive Date: 20100303
  Receipt Date: 20100218
  Transmission Date: 20100710
  Serious: Yes (Other)
  Sender: FDA-Public Use
  Company Number: DK-PFIZER INC-2010010979

PATIENT
  Sex: Female

DRUGS (1)
  1. ZELDOX [Suspect]
     Indication: SCHIZOPHRENIA, PARANOID TYPE
     Dosage: 80MG 2XDAY, SHORTER PERIODS 80MG AM, 120MG PM, OTHER PERIODS 40MG 2XDAY
     Dates: start: 20050816

REACTIONS (4)
  - BLOOD GLUCOSE ABNORMAL [None]
  - DENTAL CARIES [None]
  - TOOTH DISCOLOURATION [None]
  - TOOTH FRACTURE [None]
